FAERS Safety Report 24791380 (Version 1)
Quarter: 2024Q4

REPORT INFORMATION
  Report Type: Spontaneous
  Country: GB (occurrence: GB)
  Receive Date: 20241231
  Receipt Date: 20241231
  Transmission Date: 20250115
  Serious: Yes (Other)
  Sender: AMGEN
  Company Number: GB-AMGEN-GBRSP2024252344

PATIENT
  Age: 69 Year
  Sex: Female

DRUGS (4)
  1. FILGRASTIM [Suspect]
     Active Substance: FILGRASTIM
     Indication: Product used for unknown indication
     Dosage: UNK AFTER CHEMO (2 X 8 DOSES OF FILGRASTIM IN CYCLES 1 AND 2 STARTING 24 HOURS POST CHEMO)
     Route: 065
     Dates: start: 20241021
  2. FILGRASTIM [Suspect]
     Active Substance: FILGRASTIM
     Dosage: UNK AFTER CHEMO (2 X 8 DOSES OF FILGRASTIM IN CYCLES 1 AND 2 STARTING 24 HOURS POST CHEMO)
     Route: 065
     Dates: start: 20241111, end: 2024
  3. CYCLOPHOSPHAMIDE [Concomitant]
     Active Substance: CYCLOPHOSPHAMIDE
     Dosage: UNK
     Route: 065
     Dates: start: 20241210
  4. EPIRUBICIN [Concomitant]
     Active Substance: EPIRUBICIN
     Dosage: UNK
     Route: 065
     Dates: start: 20241210

REACTIONS (7)
  - Hypotension [Recovered/Resolved]
  - Chest discomfort [Recovered/Resolved]
  - Malaise [Unknown]
  - Dysphonia [Recovered/Resolved]
  - Hyperhidrosis [Recovered/Resolved]
  - Dyspnoea [Recovered/Resolved]
  - Headache [Recovered/Resolved]
